FAERS Safety Report 7450606-0 (Version None)
Quarter: 2011Q2

REPORT INFORMATION
  Report Type: 
  Country: None (occurrence: None)
  Receive Date: 20110429
  Receipt Date: 20110429
  Transmission Date: 20111010
  Serious: Yes (Other)
  Sender: FDA-Public Use
  Company Number: None

PATIENT
  Age: 20 Year
  Sex: Male

DRUGS (2)
  1. CITALOPRAM HYDROBROMIDE [Suspect]
     Dosage: 20MG PO
     Route: 048
     Dates: start: 20110408, end: 20110412
  2. ZOLPIDEM [Concomitant]

REACTIONS (1)
  - DYSTONIA [None]
